FAERS Safety Report 17297217 (Version 5)
Quarter: 2020Q1

REPORT INFORMATION
  Report Type: Report from Study
  Country: US (occurrence: US)
  Receive Date: 20200121
  Receipt Date: 20200326
  Transmission Date: 20200409
  Serious: Yes (Hospitalization, Other)
  Sender: FDA-Public Use
  Company Number: US-GLAXOSMITHKLINE-US2020TSO010454

PATIENT
  Age: 78 Year
  Sex: Female

DRUGS (5)
  1. LEVOTHYROXINE SODIUM. [Concomitant]
     Active Substance: LEVOTHYROXINE SODIUM
     Dosage: UNK
  2. SIMVASTATIN. [Concomitant]
     Active Substance: SIMVASTATIN
     Indication: PRODUCT USED FOR UNKNOWN INDICATION
     Dosage: UNK
  3. METFORMIN HYDROCHLORIDE. [Concomitant]
     Active Substance: METFORMIN HYDROCHLORIDE
     Indication: PRODUCT USED FOR UNKNOWN INDICATION
     Dosage: UNK
  4. NIRAPARIB [Suspect]
     Active Substance: NIRAPARIB
     Indication: OVARIAN CANCER
     Dosage: 200 MG, QD
     Route: 048
     Dates: start: 20200114, end: 20200128
  5. VITAMIN D2 [Concomitant]
     Active Substance: ERGOCALCIFEROL
     Dosage: UNK

REACTIONS (21)
  - Decreased appetite [Unknown]
  - Platelet count decreased [Unknown]
  - Dysphagia [Unknown]
  - Oropharyngeal pain [Unknown]
  - Blood creatinine increased [Unknown]
  - Investigation abnormal [Recovered/Resolved]
  - Retching [Unknown]
  - Oral discomfort [Unknown]
  - Nausea [Unknown]
  - Thrombocytopenia [Unknown]
  - Fatigue [Unknown]
  - Tachycardia [Unknown]
  - Constipation [Unknown]
  - Gastrointestinal haemorrhage [Unknown]
  - Oral mucosal blistering [Unknown]
  - Anaemia [Recovered/Resolved]
  - Oral pain [Recovered/Resolved]
  - Mucosal inflammation [Recovered/Resolved]
  - Laboratory test abnormal [Unknown]
  - Hallucination [Recovered/Resolved]
  - Hypotension [Unknown]

NARRATIVE: CASE EVENT DATE: 20200120
